FAERS Safety Report 7176667-4 (Version None)
Quarter: 2010Q4

REPORT INFORMATION
  Report Type: 
  Country: None (occurrence: None)
  Receive Date: 20101220
  Receipt Date: 20101207
  Transmission Date: 20110411
  Serious: No
  Sender: FDA-Public Use
  Company Number: US-JNJFOC-20101204077

PATIENT
  Sex: Male
  Weight: 105.24 kg

DRUGS (2)
  1. FENTANYL-100 [Suspect]
     Indication: BACK PAIN
     Dosage: 100+25 UG/ HR
     Route: 062
  2. FENTANYL-100 [Suspect]
     Indication: ILL-DEFINED DISORDER
     Route: 062

REACTIONS (5)
  - ALCOHOL USE [None]
  - DRUG ADMINISTERED AT INAPPROPRIATE SITE [None]
  - MALAISE [None]
  - PRODUCT ADHESION ISSUE [None]
  - WRONG TECHNIQUE IN DRUG USAGE PROCESS [None]
